FAERS Safety Report 4527983-3 (Version None)
Quarter: 2004Q4

REPORT INFORMATION
  Report Type: 
  Country: None (occurrence: None)
  Receive Date: 20041123
  Receipt Date: 20040128
  Transmission Date: 20050328
  Serious: Yes (Other)
  Sender: FDA-Public Use
  Company Number: 2004007309

PATIENT
  Age: 50 Year
  Sex: Male
  Weight: 71.4415 kg

DRUGS (2)
  1. LIPITOR [Suspect]
     Indication: DYSLIPIDAEMIA
     Dosage: 10 MG (DAILY), ORAL
     Route: 048
     Dates: end: 20040125
  2. ASPIRIN [Concomitant]

REACTIONS (1)
  - EYE HAEMORRHAGE [None]
